FAERS Safety Report 16639992 (Version 4)
Quarter: 2019Q3

REPORT INFORMATION
  Report Type: Report from Study
  Country: CA (occurrence: CA)
  Receive Date: 20190727
  Receipt Date: 20190807
  Transmission Date: 20191004
  Serious: Yes (Hospitalization)
  Sender: FDA-Public Use
  Company Number: CA-HLSUS-2019-CA-000776

PATIENT
  Age: 43 Year
  Sex: Female

DRUGS (1)
  1. CLOZARIL [Suspect]
     Active Substance: CLOZAPINE
     Dosage: 300MG
     Route: 048
     Dates: start: 20190424, end: 20190716

REACTIONS (5)
  - Leukopenia [Unknown]
  - Chills [Unknown]
  - Pyrexia [Unknown]
  - Neutropenia [Unknown]
  - Dizziness [Unknown]

NARRATIVE: CASE EVENT DATE: 20190716
